FAERS Safety Report 7132336-8 (Version None)
Quarter: 2010Q4

REPORT INFORMATION
  Report Type: 
  Country: None (occurrence: None)
  Receive Date: 20101202
  Receipt Date: 20101129
  Transmission Date: 20110411
  Serious: Yes (Death, Hospitalization, Other)
  Sender: FDA-Public Use
  Company Number: PHHY2010CA79628

PATIENT
  Sex: Male
  Weight: 54 kg

DRUGS (10)
  1. EXELON [Suspect]
     Indication: DEMENTIA ALZHEIMER'S TYPE
     Dosage: UNK
     Route: 062
     Dates: start: 20090205, end: 20100901
  2. EXELON [Suspect]
     Indication: COGNITIVE DISORDER
  3. ACTONEL [Concomitant]
     Dosage: 25 MG ONCE A WEEK
  4. MAVIK [Concomitant]
     Dosage: 1 CAPSULE DAILY
  5. CALCIUM 500 [Concomitant]
  6. VITAMIN D [Concomitant]
     Dosage: 400 BID
  7. CARBAMAZEPINE [Concomitant]
     Dosage: 1 DF, BID
  8. VENTOLIN [Concomitant]
     Dosage: 1- 2 PUFFS
  9. FLOVENT [Concomitant]
     Dosage: ONE TO TWO INHALATION BID
  10. TYLENOL-500 [Concomitant]
     Dosage: 1-2 TABS PRN

REACTIONS (5)
  - CARDIAC FAILURE [None]
  - COLON CANCER RECURRENT [None]
  - EMBOLISM ARTERIAL [None]
  - METASTASIS [None]
  - MULTI-ORGAN FAILURE [None]
